FAERS Safety Report 25758584 (Version 1)
Quarter: 2025Q3

REPORT INFORMATION
  Report Type: Spontaneous
  Country: JP (occurrence: JP)
  Receive Date: 20250904
  Receipt Date: 20250904
  Transmission Date: 20251021
  Serious: Yes (Other)
  Sender: BEIGENE
  Company Number: JP-BEIGENE-BGN-2025-014945

PATIENT
  Age: 80 Year

DRUGS (5)
  1. TEVIMBRA [Suspect]
     Active Substance: TISLELIZUMAB-JSGR
     Indication: Oesophageal carcinoma
     Dosage: 200 MILLIGRAM, Q3WK
  2. TEVIMBRA [Suspect]
     Active Substance: TISLELIZUMAB-JSGR
     Dosage: 200 MILLIGRAM, Q3WK
  3. TEVIMBRA [Suspect]
     Active Substance: TISLELIZUMAB-JSGR
     Dosage: 200 MILLIGRAM, Q3WK
  4. TEVIMBRA [Suspect]
     Active Substance: TISLELIZUMAB-JSGR
     Dosage: 200 MILLIGRAM, Q3WK
  5. FLUOROURACIL [Suspect]
     Active Substance: FLUOROURACIL
     Indication: Product used for unknown indication

REACTIONS (1)
  - Disease progression [Unknown]
